FAERS Safety Report 11359755 (Version 1)
Quarter: 2015Q3

REPORT INFORMATION
  Report Type: Spontaneous
  Country: GB (occurrence: GB)
  Receive Date: 20150808
  Receipt Date: 20150808
  Transmission Date: 20151125
  Serious: Yes (Disabling)
  Sender: FDA-Public Use
  Company Number: GB-CIPLA LTD.-2015GB06257

PATIENT

DRUGS (7)
  1. CITALOPRAM [Suspect]
     Active Substance: CITALOPRAM HYDROBROMIDE
     Dosage: UNK
     Route: 065
     Dates: start: 20140819
  2. LANSOPRAZOLE. [Concomitant]
     Active Substance: LANSOPRAZOLE
     Dosage: 1 DF, TID
     Route: 065
     Dates: start: 20150310, end: 20150626
  3. PARACETAMOL [Concomitant]
     Active Substance: ACETAMINOPHEN
     Dosage: 2 DF, TWO TO BE TAKEN FOUR TIMES A DAY AS REQUIRED
     Route: 065
     Dates: start: 20140603
  4. FLUTICASONE [Concomitant]
     Active Substance: FLUTICASONE\FLUTICASONE PROPIONATE
     Dosage: 2 DF, BID
     Route: 065
     Dates: start: 20140603, end: 20150611
  5. CALCIUM CARBONATE. [Concomitant]
     Active Substance: CALCIUM CARBONATE
     Dosage: 1 DF, BID
     Route: 065
     Dates: start: 20150305
  6. QUININE [Concomitant]
     Active Substance: QUININE
     Dosage: 1 DF, QD AT NIGHT
     Route: 065
     Dates: start: 20140603
  7. SALBUTAMOL [Concomitant]
     Active Substance: ALBUTEROL
     Dosage: 1 -2 AS REQUIRED FOUR TIMES A DAY
     Route: 065
     Dates: start: 20140603

REACTIONS (1)
  - Tardive dyskinesia [Recovering/Resolving]

NARRATIVE: CASE EVENT DATE: 20150422
